FAERS Safety Report 14208111 (Version 1)
Quarter: 2017Q4

REPORT INFORMATION
  Report Type: Spontaneous
  Country: US (occurrence: US)
  Receive Date: 20171120
  Receipt Date: 20171120
  Transmission Date: 20180321
  Serious: Yes (Other)
  Sender: FDA-Public Use
  Company Number: None

PATIENT
  Age: 48 Year
  Sex: Female
  Weight: 58.95 kg

DRUGS (6)
  1. GINKOBA [Concomitant]
     Active Substance: GINKGO
  2. IBRANCE [Suspect]
     Active Substance: PALBOCICLIB
     Indication: BREAST CANCER
     Route: 048
     Dates: start: 20170831
  3. TYLENOL [Concomitant]
     Active Substance: ACETAMINOPHEN
  4. LETROZOLE. [Concomitant]
     Active Substance: LETROZOLE
  5. CLARITIN [Concomitant]
     Active Substance: LORATADINE
  6. MELATONIN [Concomitant]
     Active Substance: MELATONIN

REACTIONS (1)
  - Disease progression [None]
